FAERS Safety Report 8515401-X (Version None)
Quarter: 2012Q3

REPORT INFORMATION
  Report Type: 
  Country: None (occurrence: None)
  Receive Date: 20120705
  Receipt Date: 20120626
  Transmission Date: 20120928
  Serious: Yes (Other)
  Sender: FDA-Public Use
  Company Number: DKLU1082767

PATIENT
  Age: 43 Year
  Sex: Female

DRUGS (3)
  1. ZONISAMIDE [Suspect]
     Indication: EPILEPSY
     Dosage: 100 MG MILLIGRAM(S), 1 IN 1 D
  2. OXCARBAZEPINE [Suspect]
     Indication: EPILEPSY
     Dosage: 600 MG MILLIGRAM(S), 2 IN 1 D
  3. ONFI [Suspect]
     Indication: EPILEPSY
     Dosage: 10 MG MILLIGRAM(S), 2 IN 1 D

REACTIONS (10)
  - HYPERPARATHYROIDISM SECONDARY [None]
  - FEMUR FRACTURE [None]
  - BLOOD ALKALINE PHOSPHATASE INCREASED [None]
  - OSTEOPOROSIS [None]
  - VITAMIN D DEFICIENCY [None]
  - PATHOLOGICAL FRACTURE [None]
  - OSTEOMALACIA [None]
  - HIGH TURNOVER OSTEOPATHY [None]
  - BROWN TUMOUR [None]
  - BONE CYST [None]
